FAERS Safety Report 5788886-X (Version None)
Quarter: 2008Q2

REPORT INFORMATION
  Report Type: 
  Country: None (occurrence: None)
  Receive Date: 20080626
  Receipt Date: 20071119
  Transmission Date: 20081010
  Serious: No
  Sender: FDA-Public Use
  Company Number: US-ASTRAZENECA-2007UW26705

PATIENT
  Sex: Male

DRUGS (1)
  1. PULMICORT-100 [Suspect]
     Dosage: ONCE OR TWICE A YEAR
     Route: 055

REACTIONS (1)
  - VISUAL DISTURBANCE [None]
